FAERS Safety Report 17827534 (Version 1)
Quarter: 2020Q2

REPORT INFORMATION
  Report Type: Spontaneous
  Country: CA (occurrence: CA)
  Receive Date: 20200527
  Receipt Date: 20200527
  Transmission Date: 20200714
  Serious: Yes (Hospitalization, Other)
  Sender: FDA-Public Use
  Company Number: CA-TEVA-2020-CA-1239751

PATIENT
  Age: 77 Year
  Sex: Male
  Weight: 70 kg

DRUGS (8)
  1. GOSERELIN [Concomitant]
     Active Substance: GOSERELIN
  2. XGEVA SINGLE-USE VIAL. FOR S.C. USE ONLY. PRESERVATIVE-FREE. [Concomitant]
  3. CALCIUM + VITAMIN D[CALCIUM;COLECALCIFEROL] [Concomitant]
  4. PREDNISONE. [Concomitant]
     Active Substance: PREDNISONE
  5. BIOTIN/FOLIC ACID/IODINE/PANTOTHENIC ACID/PYRIDOXINE HYDROCHLORIDE/VIT [Concomitant]
  6. STEMETIL[PROCHLORPERAZINE] [Concomitant]
  7. DOCETAXEL. [Suspect]
     Active Substance: DOCETAXEL
     Indication: ADENOCARCINOMA
     Route: 042
  8. TYLENOL 8 HR ARTHRITIS PAIN [Concomitant]
     Active Substance: ACETAMINOPHEN

REACTIONS (2)
  - Haemoglobin decreased [Recovered/Resolved]
  - Dyspnoea [Recovered/Resolved]
